FAERS Safety Report 8583832-8 (Version None)
Quarter: 2012Q3

REPORT INFORMATION
  Report Type: 
  Country: None (occurrence: None)
  Receive Date: 20120810
  Receipt Date: 20120801
  Transmission Date: 20120928
  Serious: Yes (Hospitalization, Other)
  Sender: FDA-Public Use
  Company Number: US-009507513-2012SP022602

PATIENT

DRUGS (3)
  1. NUVARING [Suspect]
     Dosage: 1 DF, UNK
     Route: 067
     Dates: start: 20060708, end: 20090706
  2. NUVARING [Suspect]
     Indication: MENSTRUAL DISORDER
     Dosage: 1 DF, QM
     Route: 067
     Dates: start: 20050822, end: 20051201
  3. NUVARING [Suspect]
     Indication: CONTRACEPTION
     Dosage: 1 DF, QM
     Route: 067
     Dates: start: 20041128, end: 20090701

REACTIONS (5)
  - BACK PAIN [None]
  - CHEST PAIN [None]
  - PULMONARY EMBOLISM [None]
  - DYSPNOEA [None]
  - DEEP VEIN THROMBOSIS [None]
